FAERS Safety Report 22383342 (Version 1)
Quarter: 2023Q2

REPORT INFORMATION
  Report Type: Report from Study
  Country: DE (occurrence: DE)
  Receive Date: 20230530
  Receipt Date: 20230530
  Transmission Date: 20230721
  Serious: Yes (Other)
  Sender: FDA-Public Use
  Company Number: DE-002147023-PHHY2019DE062558

PATIENT
  Sex: Female
  Weight: 100 kg

DRUGS (7)
  1. EXEMESTANE [Suspect]
     Active Substance: EXEMESTANE
     Indication: Breast cancer
     Dosage: 25 MG, 1X/DAY
     Route: 048
     Dates: start: 20230104
  2. FULVESTRANT [Suspect]
     Active Substance: FULVESTRANT
     Indication: Breast cancer
     Dosage: EVERY 4 WEEKS, Q4W
     Route: 030
     Dates: start: 20221021, end: 20221205
  3. LETROZOLE [Suspect]
     Active Substance: LETROZOLE
     Indication: Breast cancer
     Dosage: 2.5 MG, 1X/DAY
     Route: 048
     Dates: start: 20190123, end: 20200604
  4. KISQALI [Suspect]
     Active Substance: RIBOCICLIB
     Indication: Breast cancer
     Dosage: ADMINISTRATION SCHEME 21 DAYS INTAKE, 7 DAYS PAUSE
     Route: 048
     Dates: start: 20190123, end: 20190506
  5. KISQALI [Suspect]
     Active Substance: RIBOCICLIB
     Dosage: 1X/DAY QD ADMINISTRATION SCHEME 21 DAYS INTAKE, 7 DAYS PAUSE
     Route: 048
     Dates: start: 20190613, end: 20200311
  6. KISQALI [Suspect]
     Active Substance: RIBOCICLIB
     Dosage: 1X/DAY, QD ADMINISTRATION SCHEME 21 DAYS INTAKE, 7 DAYS PAUSE
     Route: 048
     Dates: start: 20200518, end: 20200604
  7. KISQALI [Suspect]
     Active Substance: RIBOCICLIB
     Dosage: 400 MG, 1X/DAY
     Route: 048
     Dates: start: 20221022

REACTIONS (12)
  - Uterine polyp [Recovered/Resolved]
  - Gastrooesophageal reflux disease [Recovered/Resolved]
  - Myalgia [Unknown]
  - Fatigue [Unknown]
  - Arthralgia [Recovered/Resolved]
  - Vaginal haemorrhage [Recovered/Resolved]
  - Onychoclasis [Recovered/Resolved]
  - Nausea [Recovered/Resolved]
  - Influenza like illness [Recovered/Resolved]
  - Sleep disorder [Recovering/Resolving]
  - Diplopia [Recovering/Resolving]
  - Arthralgia [Not Recovered/Not Resolved]

NARRATIVE: CASE EVENT DATE: 20190202
